FAERS Safety Report 6814481-7 (Version None)
Quarter: 2010Q3

REPORT INFORMATION
  Report Type: 
  Country: None (occurrence: None)
  Receive Date: 20100702
  Receipt Date: 20100625
  Transmission Date: 20110219
  Serious: Yes (Hospitalization)
  Sender: FDA-Public Use
  Company Number: PHHO2010DE07075

PATIENT
  Sex: Male
  Weight: 141 kg

DRUGS (5)
  1. CERTICAN [Suspect]
     Indication: RENAL TRANSPLANT
     Dosage: UNK
     Route: 048
     Dates: start: 20090730, end: 20091106
  2. CERTICAN [Suspect]
     Dosage: 1.5 MG, BID
     Route: 048
     Dates: start: 20091107, end: 20100515
  3. MYFORTIC [Suspect]
     Indication: RENAL TRANSPLANT
     Dosage: UNK
     Dates: start: 20090730
  4. SANDIMMUNE [Concomitant]
     Indication: RENAL TRANSPLANT
     Dosage: UNK
     Dates: start: 20090807, end: 20091106
  5. SIMULECT [Concomitant]
     Indication: RENAL TRANSPLANT
     Dosage: UNK

REACTIONS (7)
  - ARTERIOSCLEROSIS [None]
  - ARTERIOSCLEROTIC GANGRENE [None]
  - CONCOMITANT DISEASE PROGRESSION [None]
  - DIABETES MELLITUS [None]
  - NECROSIS [None]
  - TOE AMPUTATION [None]
  - VASCULAR GRAFT [None]
